FAERS Safety Report 8928968 (Version 2)
Quarter: 2012Q4

REPORT INFORMATION
  Report Type: 
  Country: US (occurrence: US)
  Receive Date: 20121128
  Receipt Date: 20121207
  Transmission Date: 20130627
  Serious: Yes (Hospitalization)
  Sender: FDA-Public Use
  Company Number: US-GENZYME-POMP-1002588

PATIENT
  Sex: Male

DRUGS (3)
  1. LUMIZYME [Suspect]
     Indication: GLYCOGEN STORAGE DISEASE TYPE II
     Dosage: 1200 mg, q2w
     Route: 042
     Dates: start: 20120304
  2. GLUCOSE [Concomitant]
     Indication: PREMEDICATION
     Dosage: 65 mg/dl, once
     Route: 042
     Dates: start: 20121024, end: 20121024
  3. FLUORODEOXYGLUCOSE F 18 [Concomitant]
     Indication: POSITRON EMISSION TOMOGRAM
     Dosage: 12.72 mcl, once
     Route: 042
     Dates: start: 20121024, end: 20121024

REACTIONS (1)
  - Seminoma [Recovered/Resolved]
